FAERS Safety Report 20103807 (Version 1)
Quarter: 2021Q4

REPORT INFORMATION
  Report Type: Spontaneous
  Country: RU (occurrence: RU)
  Receive Date: 20211123
  Receipt Date: 20211123
  Transmission Date: 20220304
  Serious: Yes (Congenital Anomaly, Other)
  Sender: FDA-Public Use
  Company Number: RU-BIOGEN-2021BI01071010

PATIENT

DRUGS (1)
  1. TECFIDERA [Suspect]
     Active Substance: DIMETHYL FUMARATE
     Indication: Maternal exposure timing unspecified
     Route: 064
     Dates: start: 201704, end: 20201016

REACTIONS (1)
  - Skeletal dysplasia [Recovered/Resolved]

NARRATIVE: CASE EVENT DATE: 20201001
